FAERS Safety Report 10102707 (Version 2)
Quarter: 2014Q2

REPORT INFORMATION
  Report Type: Other
  Country: US (occurrence: US)
  Receive Date: 20140424
  Receipt Date: 20140627
  Transmission Date: 20141212
  Serious: Yes (Hospitalization, Other)
  Sender: FDA-Public Use
  Company Number: US-GSKPPD-2014GSK000330

PATIENT
  Sex: Male

DRUGS (7)
  1. AVANDIA [Suspect]
     Indication: DIABETES MELLITUS
     Route: 048
     Dates: start: 20020301, end: 20020908
  2. ASPIRIN [Concomitant]
     Dates: start: 20100225
  3. COREG [Concomitant]
     Dates: start: 20100225
  4. IMDUR [Concomitant]
     Dates: start: 20100225
  5. PRAVACHOL [Concomitant]
     Dates: start: 20100225
  6. VASOTEC [Concomitant]
  7. NORVASC [Concomitant]

REACTIONS (1)
  - Coronary artery bypass [Recovered/Resolved]
